FAERS Safety Report 25135691 (Version 3)
Quarter: 2025Q2

REPORT INFORMATION
  Report Type: Spontaneous
  Country: CA (occurrence: CA)
  Receive Date: 20250328
  Receipt Date: 20250417
  Transmission Date: 20250716
  Serious: No
  Sender: PFIZER
  Company Number: CA-PFIZER INC-PV202500016624

PATIENT
  Age: 74 Year
  Sex: Male
  Weight: 104.1 kg

DRUGS (13)
  1. RUXIENCE [Suspect]
     Active Substance: RITUXIMAB-PVVR
     Indication: Warm autoimmune haemolytic anaemia
     Dosage: 851 MG (375 MG/M2) WEEKLY X 4 DOSES
     Route: 042
     Dates: start: 20250314
  2. RUXIENCE [Suspect]
     Active Substance: RITUXIMAB-PVVR
     Dosage: 851 MG (375 MG/M2) WEEKLY X 4 DOSES
     Route: 042
     Dates: start: 20250314
  3. RUXIENCE [Suspect]
     Active Substance: RITUXIMAB-PVVR
     Dosage: 851 MG INFUSED IV Q WEEKLY
     Route: 042
     Dates: start: 20250321
  4. RUXIENCE [Suspect]
     Active Substance: RITUXIMAB-PVVR
     Dosage: 851 MG, WEEKLY. PREVIOUS INFUSION WAS ON 21MAR2025 (SHOULD BE WEEKLY).
     Route: 042
     Dates: start: 20250331
  5. RUXIENCE [Suspect]
     Active Substance: RITUXIMAB-PVVR
     Dosage: 851 MG, WEEKLY. PREVIOUS INFUSION WAS ON 21MAR2025 (SHOULD BE WEEKLY).
     Route: 042
     Dates: start: 20250331
  6. RUXIENCE [Suspect]
     Active Substance: RITUXIMAB-PVVR
     Dosage: 851 MG, WEEKLY
     Route: 042
     Dates: start: 20250407
  7. RUXIENCE [Suspect]
     Active Substance: RITUXIMAB-PVVR
     Dosage: 851 MG, WEEKLY
     Route: 042
     Dates: start: 20250407
  8. TYLENOL [Concomitant]
     Active Substance: ACETAMINOPHEN
     Indication: Premedication
     Dates: start: 20250331, end: 20250331
  9. TYLENOL [Concomitant]
     Active Substance: ACETAMINOPHEN
     Dates: start: 20250407, end: 20250407
  10. BENADRYL [Concomitant]
     Active Substance: DIPHENHYDRAMINE HYDROCHLORIDE
     Indication: Premedication
     Dates: start: 20250331, end: 20250331
  11. BENADRYL [Concomitant]
     Active Substance: DIPHENHYDRAMINE HYDROCHLORIDE
     Dates: start: 20250407, end: 20250407
  12. SOLU-MEDROL [Concomitant]
     Active Substance: METHYLPREDNISOLONE SODIUM SUCCINATE
     Indication: Premedication
     Dates: start: 20250331, end: 20250331
  13. SOLU-MEDROL [Concomitant]
     Active Substance: METHYLPREDNISOLONE SODIUM SUCCINATE
     Dates: start: 20250407, end: 20250407

REACTIONS (4)
  - Heart rate irregular [Unknown]
  - Blood pressure fluctuation [Unknown]
  - Inappropriate schedule of product administration [Unknown]
  - Off label use [Unknown]

NARRATIVE: CASE EVENT DATE: 20250314
